FAERS Safety Report 12319609 (Version 1)
Quarter: 2016Q2

REPORT INFORMATION
  Report Type: Spontaneous
  Country: US (occurrence: US)
  Receive Date: 20160429
  Receipt Date: 20160429
  Transmission Date: 20160815
  Serious: No
  Sender: FDA-Public Use
  Company Number: US-ROCHE-1605692

PATIENT
  Sex: Male
  Weight: 88.08 kg

DRUGS (1)
  1. ESBRIET [Suspect]
     Active Substance: PIRFENIDONE
     Indication: IDIOPATHIC PULMONARY FIBROSIS
     Dosage: TOTAL 2403 MG DAILY,3 CAPSULES
     Route: 048
     Dates: start: 20150623

REACTIONS (3)
  - Nausea [Unknown]
  - Decreased appetite [Unknown]
  - Drug ineffective [Unknown]
